FAERS Safety Report 12424551 (Version 2)
Quarter: 2017Q2

REPORT INFORMATION
  Report Type: Spontaneous
  Country: US (occurrence: US)
  Receive Date: 20160601
  Receipt Date: 20170602
  Transmission Date: 20170830
  Serious: No
  Sender: FDA-Public Use
  Company Number: US-NOVEN PHARMACEUTICALS, INC.-US2016000159

PATIENT

DRUGS (2)
  1. DAYTRANA [Suspect]
     Active Substance: METHYLPHENIDATE
     Dosage: USING TWO, 10 MG PATCHES, UNKNOWN
     Route: 062
     Dates: end: 20161216
  2. DAYTRANA [Suspect]
     Active Substance: METHYLPHENIDATE
     Indication: ASTHENIA
     Dosage: 20 MG, UNKNOWN
     Route: 062
     Dates: start: 201507

REACTIONS (7)
  - Drug dose omission [Not Recovered/Not Resolved]
  - Loss of personal independence in daily activities [Not Recovered/Not Resolved]
  - Condition aggravated [Not Recovered/Not Resolved]
  - Fatigue [Not Recovered/Not Resolved]
  - Off label use [Unknown]
  - Wrong technique in product usage process [Recovered/Resolved]
  - Drug withdrawal syndrome [Not Recovered/Not Resolved]

NARRATIVE: CASE EVENT DATE: 201507
